FAERS Safety Report 6441616-0 (Version None)
Quarter: 2009Q4

REPORT INFORMATION
  Report Type: 
  Country: None (occurrence: None)
  Receive Date: 20091116
  Receipt Date: 20091103
  Transmission Date: 20100525
  Serious: Yes (Other)
  Sender: FDA-Public Use
  Company Number: US-SANOFI-AVENTIS-200918512US

PATIENT
  Age: 69 Year
  Sex: Female
  Weight: 122.72 kg

DRUGS (2)
  1. INSULIN GLARGINE [Suspect]
     Dosage: DOSE:68 UNIT(S)
     Route: 058
     Dates: start: 20070101
  2. OPTICLICK [Suspect]
     Dates: start: 20070101

REACTIONS (2)
  - CATARACT [None]
  - VISUAL IMPAIRMENT [None]
